FAERS Safety Report 12749739 (Version 2)
Quarter: 2016Q4

REPORT INFORMATION
  Report Type: Report from Study
  Country: IT (occurrence: IT)
  Receive Date: 20160916
  Receipt Date: 20161028
  Transmission Date: 20170207
  Serious: Yes (Death, Hospitalization, Other)
  Sender: FDA-Public Use
  Company Number: IT-TEVA-691896ACC

PATIENT

DRUGS (3)
  1. ENTRESTO [Suspect]
     Active Substance: SACUBITRIL\VALSARTAN
     Dosage: 1 DOSAGE FORMS DAILY; 1 DOSAGE FORM=97MG VALSARTAN+103 MG SACUBITRIL
  2. ENALAPRIL [Suspect]
     Active Substance: ENALAPRIL
     Dosage: 20 MILLIGRAM DAILY;
  3. ENTRESTO [Suspect]
     Active Substance: SACUBITRIL\VALSARTAN
     Dosage: 1 DOSAGE FORMS DAILY; 1DOSAGE FORM=49MG VALSARTAN/51MG SACUBITRIL

REACTIONS (7)
  - Cardiovascular disorder [Fatal]
  - Cardiac failure [Unknown]
  - Angioedema [Unknown]
  - Cough [Unknown]
  - Blood creatinine increased [Unknown]
  - Hypotension [Unknown]
  - Hyperkalaemia [Unknown]
